FAERS Safety Report 16861491 (Version 2)
Quarter: 2020Q1

REPORT INFORMATION
  Report Type: Report from Study
  Country: US (occurrence: US)
  Receive Date: 20190927
  Receipt Date: 20200103
  Transmission Date: 20200409
  Serious: Yes (Other)
  Sender: FDA-Public Use
  Company Number: PHEH2019US039022

PATIENT
  Age: 67 Year
  Sex: Female
  Weight: 67.12 kg

DRUGS (1)
  1. PROMACTA [Suspect]
     Active Substance: ELTROMBOPAG OLAMINE
     Indication: IMMUNE THROMBOCYTOPENIC PURPURA
     Dosage: 50 MG, QD
     Route: 048
     Dates: start: 20190807, end: 20190905

REACTIONS (5)
  - Paraesthesia [Recovering/Resolving]
  - Pain in extremity [Recovering/Resolving]
  - Burning sensation [Recovering/Resolving]
  - Skin exfoliation [Recovering/Resolving]
  - Irritability [Unknown]

NARRATIVE: CASE EVENT DATE: 20190807
